FAERS Safety Report 8491843-6 (Version None)
Quarter: 2012Q3

REPORT INFORMATION
  Report Type: 
  Country: None (occurrence: None)
  Receive Date: 20120706
  Receipt Date: 20110706
  Transmission Date: 20120928
  Serious: No
  Sender: FDA-Public Use
  Company Number: US-GLAXOSMITHKLINE-A0935132A

PATIENT
  Age: 20 Year
  Sex: Female

DRUGS (3)
  1. PROAIR HFA [Concomitant]
  2. YAZ [Concomitant]
  3. FLOVENT [Suspect]
     Indication: ASTHMA EXERCISE INDUCED
     Dosage: 2PUFF TWICE PER DAY
     Route: 055
     Dates: start: 20110401

REACTIONS (2)
  - DYSPNOEA [None]
  - PRODUCT QUALITY ISSUE [None]
